FAERS Safety Report 10516079 (Version 1)
Quarter: 2014Q3

REPORT INFORMATION
  Report Type: Spontaneous
  Country: US (occurrence: None)
  Receive Date: 20140926
  Receipt Date: 20140926
  Transmission Date: 20150326
  Serious: No
  Sender: FDA-Public Use
  Company Number: 1000069559

PATIENT
  Age: 89 Year
  Sex: Male

DRUGS (10)
  1. ALPRAZOLAM. [Concomitant]
     Active Substance: ALPRAZOLAM
  2. SIMVASTATIN. [Concomitant]
     Active Substance: SIMVASTATIN
  3. VITAMIN D [Concomitant]
     Active Substance: CHOLECALCIFEROL
  4. FINASTERIDE. [Concomitant]
     Active Substance: FINASTERIDE
  5. LINZESS [Suspect]
     Active Substance: LINACLOTIDE
     Indication: CONSTIPATION
     Route: 048
     Dates: start: 201307, end: 201307
  6. XARELTO [Concomitant]
     Active Substance: RIVAROXABAN
  7. VITAMIN B (VITAMIN B COMPLEX) [Concomitant]
  8. FLOMAX (TAMSULOSIN) [Concomitant]
  9. OCUVITE (LUTEIN, ZEAXANTHIN) [Concomitant]
  10. PANTOPRAZOLE [Concomitant]
     Active Substance: PANTOPRAZOLE SODIUM

REACTIONS (2)
  - Diarrhoea [None]
  - Abdominal discomfort [None]

NARRATIVE: CASE EVENT DATE: 201307
